FAERS Safety Report 9521329 (Version 1)
Quarter: 2013Q3

REPORT INFORMATION
  Report Type: Spontaneous
  Country: US (occurrence: None)
  Receive Date: 20130911
  Receipt Date: 20130911
  Transmission Date: 20140515
  Serious: Yes (Other)
  Sender: FDA-Public Use
  Company Number: NSR_01242_2013

PATIENT
  Age: 58 Year
  Sex: Female

DRUGS (11)
  1. CLONIDINE [Suspect]
     Indication: PRODUCT USED FOR UNKNOWN INDICATION
     Dosage: BID (FOR YEARS), (0.2MG TID), (TAPERED BACK TO BASELINE DOSING) DF) (0.1 MG 1X, ADDITIONAL DOSE, 0.2 MG BID?(1 DAY UNTIL NOT CONTINUING), (3 DAYS UNTIL NOT CONTINUING), (UNKNOWN UNTIL NOT CONTINUNG), (UNKNOWN UNTIL CONTINUING)
  2. TAPENTADOL [Suspect]
     Dosage: 50MG 4X?[4 DOSES OVER ABOUT 24 HOURS]), (50MG 1X)
  3. HYDROCHLOROTHIAZIDE W/TRIAMTERENE [Concomitant]
  4. VALSARTAN [Concomitant]
  5. CALCIUM CITRATE WITH VITAMIN D [Concomitant]
  6. CELECOXIB [Concomitant]
  7. DEXAMETHASONE [Concomitant]
  8. RANITIDINE [Concomitant]
  9. PALONOSETRON [Concomitant]
  10. CARBOPLATIN [Concomitant]
  11. PACLITAXEL [Concomitant]

REACTIONS (7)
  - Hypertension [None]
  - Neuropathy peripheral [None]
  - Gait disturbance [None]
  - Sleep disorder [None]
  - Feeling abnormal [None]
  - Heart rate increased [None]
  - Drug interaction [None]
